FAERS Safety Report 11480168 (Version 1)
Quarter: 2015Q3

REPORT INFORMATION
  Report Type: Spontaneous
  Country: FR (occurrence: FR)
  Receive Date: 20150909
  Receipt Date: 20150909
  Transmission Date: 20151125
  Serious: Yes (Life-Threatening, Hospitalization, Other)
  Sender: FDA-Public Use
  Company Number: FR-ABBVIE-15K-056-1459595-00

PATIENT
  Age: 69 Year
  Sex: Female
  Weight: 81 kg

DRUGS (3)
  1. HUMIRA [Suspect]
     Active Substance: ADALIMUMAB
     Indication: ANKYLOSING SPONDYLITIS
     Route: 058
     Dates: start: 2007, end: 20150527
  2. APROVEL [Concomitant]
     Active Substance: IRBESARTAN
     Indication: HYPERTENSION
  3. KERLONE [Concomitant]
     Active Substance: BETAXOLOL HYDROCHLORIDE
     Indication: HYPERTENSION

REACTIONS (16)
  - Coccidioidomycosis [Not Recovered/Not Resolved]
  - Granuloma [Not Recovered/Not Resolved]
  - Dyspnoea [Recovering/Resolving]
  - Meningitis aseptic [Not Recovered/Not Resolved]
  - Hyponatraemia [Not Recovered/Not Resolved]
  - Herpes zoster [Recovering/Resolving]
  - Fall [Not Recovered/Not Resolved]
  - Purpura [Not Recovered/Not Resolved]
  - Wheezing [Recovering/Resolving]
  - Meningitis coccidioides [Not Recovered/Not Resolved]
  - Inflammation [Not Recovered/Not Resolved]
  - Balance disorder [Not Recovered/Not Resolved]
  - Asthenia [Not Recovered/Not Resolved]
  - Colitis [Unknown]
  - Hyperhidrosis [Not Recovered/Not Resolved]
  - Hepatocellular injury [Not Recovered/Not Resolved]

NARRATIVE: CASE EVENT DATE: 2014
